FAERS Safety Report 8481927-0 (Version None)
Quarter: 2012Q3

REPORT INFORMATION
  Report Type: 
  Country: None (occurrence: None)
  Receive Date: 20120702
  Receipt Date: 20120313
  Transmission Date: 20120928
  Serious: Yes (Hospitalization)
  Sender: FDA-Public Use
  Company Number: NL-MEDIMMUNE-MEDI-0015205

PATIENT
  Age: 11 Month
  Sex: Female
  Weight: 6 kg

DRUGS (3)
  1. SYNAGIS [Suspect]
     Route: 030
     Dates: start: 20120313, end: 20120313
  2. SYNAGIS [Suspect]
     Indication: PREMATURE BABY
     Route: 030
     Dates: start: 20110926, end: 20110926
  3. SYNAGIS [Suspect]
     Route: 030
     Dates: start: 20120216, end: 20120216

REACTIONS (7)
  - DEHYDRATION [None]
  - PYREXIA [None]
  - NASOPHARYNGITIS [None]
  - VOMITING [None]
  - VIRAL INFECTION [None]
  - FLUID INTAKE REDUCED [None]
  - DIARRHOEA [None]
